FAERS Safety Report 10393378 (Version 1)
Quarter: 2014Q3

REPORT INFORMATION
  Report Type: Spontaneous
  Country: US (occurrence: US)
  Receive Date: 20140819
  Receipt Date: 20140819
  Transmission Date: 20150326
  Serious: Yes (Other)
  Sender: FDA-Public Use
  Company Number: US-JNJFOC-20140804861

PATIENT

DRUGS (2)
  1. METHYLPHENIDATE HYDROCHLORIDE. [Suspect]
     Active Substance: METHYLPHENIDATE HYDROCHLORIDE
     Indication: PRODUCT USED FOR UNKNOWN INDICATION
     Route: 048
  2. MARIJUANA [Interacting]
     Active Substance: CANNABIS SATIVA SUBSP. INDICA TOP
     Indication: DRUG DEPENDENCE
     Route: 065

REACTIONS (8)
  - Emotional disorder [Unknown]
  - Drug interaction [Unknown]
  - Anxiety [Unknown]
  - Heart rate increased [Unknown]
  - Restlessness [Unknown]
  - Blood pressure systolic increased [Unknown]
  - Dependence [Unknown]
  - Blood pressure diastolic increased [Unknown]
